FAERS Safety Report 13336216 (Version 1)
Quarter: 2017Q1

REPORT INFORMATION
  Report Type: Spontaneous
  Country: NL (occurrence: NL)
  Receive Date: 20170314
  Receipt Date: 20170314
  Transmission Date: 20170428
  Serious: Yes (Hospitalization)
  Sender: FDA-Public Use
  Company Number: NL-TEVA-748778ROM

PATIENT
  Age: 61 Year
  Sex: Female
  Weight: 80 kg

DRUGS (2)
  1. GENTAMICIN. [Concomitant]
     Active Substance: GENTAMICIN
     Indication: URINARY TRACT INFECTION
     Dosage: SINGLE DOSE OF 400 MG
     Route: 065
  2. CEFUROXIME. [Suspect]
     Active Substance: CEFUROXIME
     Indication: URINARY TRACT INFECTION
     Route: 042

REACTIONS (1)
  - Neurotoxicity [Recovered/Resolved]
